FAERS Safety Report 23334601 (Version 2)
Quarter: 2024Q1

REPORT INFORMATION
  Report Type: Other
  Country: US (occurrence: US)
  Receive Date: 20231224
  Receipt Date: 20240325
  Transmission Date: 20240409
  Serious: No
  Sender: FDA-Public Use
  Company Number: US-TRAVERE-2023TVT00645

PATIENT
  Age: 6 Month
  Sex: Female

DRUGS (5)
  1. CHOLBAM [Suspect]
     Active Substance: CHOLIC ACID
     Indication: Smith-Lemli-Opitz syndrome
     Route: 048
     Dates: start: 20230927
  2. CHOLBAM [Suspect]
     Active Substance: CHOLIC ACID
     Route: 048
  3. CHOLEXTRA [Concomitant]
  4. BARIUM SULFATE [Concomitant]
     Active Substance: BARIUM SULFATE
  5. MULTI COMPLETE [Concomitant]

REACTIONS (5)
  - Diarrhoea [Recovering/Resolving]
  - Flatulence [Unknown]
  - Frequent bowel movements [Unknown]
  - Conjunctivitis [Recovered/Resolved]
  - Inappropriate schedule of product administration [Unknown]
